FAERS Safety Report 5810516-9 (Version None)
Quarter: 2008Q3

REPORT INFORMATION
  Report Type: 
  Country: None (occurrence: None)
  Receive Date: 20080715
  Receipt Date: 20080701
  Transmission Date: 20090109
  Serious: Yes (Hospitalization)
  Sender: FDA-Public Use
  Company Number: NL-ELI_LILLY_AND_COMPANY-NL200804006014

PATIENT
  Age: 40 Year
  Sex: Male

DRUGS (1)
  1. HUMATROPE [Suspect]
     Dosage: 0.6 MG, DAILY (1/D)
     Route: 058

REACTIONS (2)
  - INTENTIONAL OVERDOSE [None]
  - PANCREATITIS ACUTE [None]
